FAERS Safety Report 21491347 (Version 1)
Quarter: 2022Q4

REPORT INFORMATION
  Report Type: Spontaneous
  Country: JP (occurrence: JP)
  Receive Date: 20221021
  Receipt Date: 20221021
  Transmission Date: 20230112
  Serious: Yes (Death, Other)
  Sender: FDA-Public Use
  Company Number: JP-SUN PHARMACEUTICAL INDUSTRIES LTD-2022RR-360432

PATIENT
  Age: 71 Year
  Sex: Female

DRUGS (6)
  1. DOXORUBICIN [Suspect]
     Active Substance: DOXORUBICIN
     Indication: Gallbladder cancer
     Dosage: UNK
     Route: 065
  2. GEMCITABINE [Suspect]
     Active Substance: GEMCITABINE
     Indication: Gallbladder cancer
     Dosage: UNK
     Route: 065
  3. CISPLATIN [Suspect]
     Active Substance: CISPLATIN
     Indication: Gallbladder cancer
     Dosage: UNK
     Route: 065
  4. TEGAFUR [Suspect]
     Active Substance: TEGAFUR
     Indication: Gallbladder cancer
     Dosage: UNK
     Route: 065
  5. GIMERACIL [Suspect]
     Active Substance: GIMERACIL
     Indication: Gallbladder cancer
     Dosage: UNK
     Route: 065
  6. OTERACIL POTASSIUM [Suspect]
     Active Substance: OTERACIL POTASSIUM
     Indication: Gallbladder cancer
     Dosage: UNK
     Route: 065

REACTIONS (1)
  - Disease progression [Fatal]
